FAERS Safety Report 23064393 (Version 2)
Quarter: 2023Q4

REPORT INFORMATION
  Report Type: Spontaneous
  Country: CH (occurrence: CH)
  Receive Date: 20231013
  Receipt Date: 20231017
  Transmission Date: 20240110
  Serious: Yes (Life-Threatening, Other)
  Sender: FDA-Public Use
  Company Number: CH-MYLANLABS-2023M1106433

PATIENT
  Sex: Female
  Weight: 55 kg

DRUGS (1)
  1. XANAX [Suspect]
     Active Substance: ALPRAZOLAM
     Indication: Product used for unknown indication
     Dosage: UNK
     Route: 065

REACTIONS (8)
  - Drug intolerance [Unknown]
  - Suicidal ideation [Unknown]
  - Hypoaesthesia [Unknown]
  - Fear [Unknown]
  - Nightmare [Unknown]
  - Bedridden [Unknown]
  - Dry mouth [Unknown]
  - Thinking abnormal [Unknown]
